FAERS Safety Report 7934539-9 (Version None)
Quarter: 2011Q4

REPORT INFORMATION
  Report Type: 
  Country: None (occurrence: None)
  Receive Date: 20111122
  Receipt Date: 20111115
  Transmission Date: 20120403
  Serious: Yes (Hospitalization)
  Sender: FDA-Public Use
  Company Number: US-ABBOTT-11P-163-0868335-00

PATIENT
  Sex: Female
  Weight: 97.61 kg

DRUGS (6)
  1. CALCIUM [Concomitant]
     Indication: MINERAL SUPPLEMENTATION
  2. METHOTREXATE [Concomitant]
     Indication: RHEUMATOID ARTHRITIS
  3. EXCEDRIN BACK AND BODY [Concomitant]
     Indication: ARTHRALGIA
  4. HUMIRA [Suspect]
     Indication: RHEUMATOID ARTHRITIS
     Dates: start: 20040101
  5. VITAMIN D [Concomitant]
     Indication: VITAMIN SUPPLEMENTATION
  6. METFORMIN HCL [Concomitant]
     Indication: DIABETES MELLITUS
     Dosage: TYPE II

REACTIONS (9)
  - INCORRECT DOSE ADMINISTERED [None]
  - BACK DISORDER [None]
  - DISABILITY [None]
  - SPINAL COMPRESSION FRACTURE [None]
  - OSTEOPOROSIS [None]
  - PNEUMONIA [None]
  - BACK PAIN [None]
  - FEELING ABNORMAL [None]
  - INJECTION SITE PAIN [None]
